FAERS Safety Report 20866379 (Version 1)
Quarter: 2022Q2

REPORT INFORMATION
  Report Type: Spontaneous
  Country: US (occurrence: None)
  Receive Date: 20220523
  Receipt Date: 20220523
  Transmission Date: 20220721
  Serious: Yes (Hospitalization)
  Sender: FDA-Public Use
  Company Number: None

PATIENT
  Age: 53 Year
  Sex: Female

DRUGS (4)
  1. ACTEMRA [Suspect]
     Active Substance: TOCILIZUMAB
     Indication: Systemic scleroderma
     Dosage: OTHER QUANTITY : 162 MG/0.9ML;?
     Route: 058
     Dates: start: 20210512
  2. PANTOPRAZOLE [Concomitant]
     Active Substance: PANTOPRAZOLE
  3. PEPCID AC [Concomitant]
     Active Substance: FAMOTIDINE
  4. REGLAN [Concomitant]

REACTIONS (2)
  - Therapy interrupted [None]
  - Pneumothorax [None]

NARRATIVE: CASE EVENT DATE: 20220503
